FAERS Safety Report 9205365 (Version 1)
Quarter: 2013Q2

REPORT INFORMATION
  Report Type: Report from Study
  Country: US (occurrence: US)
  Receive Date: 20130402
  Receipt Date: 20130402
  Transmission Date: 20140414
  Serious: Yes (Hospitalization)
  Sender: FDA-Public Use
  Company Number: US-US-EMD SERONO, INC.-7202286

PATIENT
  Sex: Female

DRUGS (4)
  1. REBIF [Suspect]
     Indication: MULTIPLE SCLEROSIS
     Route: 058
     Dates: start: 20120917, end: 201303
  2. PROCARDIA [Concomitant]
     Indication: HYPERTENSION
  3. SOMA [Concomitant]
     Indication: PRODUCT USED FOR UNKNOWN INDICATION
  4. MORPHINE [Concomitant]
     Indication: PRODUCT USED FOR UNKNOWN INDICATION

REACTIONS (11)
  - Staphylococcal infection [Recovered/Resolved]
  - Hypertension [Not Recovered/Not Resolved]
  - Wound [Recovered/Resolved]
  - Nausea [Unknown]
  - Vomiting [Unknown]
  - Skin disorder [Unknown]
  - Weight decreased [Not Recovered/Not Resolved]
  - Fall [Unknown]
  - Neck injury [Unknown]
  - Back injury [Unknown]
  - Skin injury [Unknown]
